FAERS Safety Report 8214472-8 (Version None)
Quarter: 2012Q1

REPORT INFORMATION
  Report Type: 
  Country: None (occurrence: None)
  Receive Date: 20120316
  Receipt Date: 20120306
  Transmission Date: 20120608
  Serious: Yes (Hospitalization)
  Sender: FDA-Public Use
  Company Number: NL-JNJFOC-20120303384

PATIENT
  Age: 55 Year
  Sex: Male

DRUGS (5)
  1. REMICADE [Suspect]
     Indication: PRODUCT USED FOR UNKNOWN INDICATION
     Route: 042
     Dates: start: 20120201, end: 20120201
  2. GALVUS [Concomitant]
     Route: 065
  3. REMICADE [Suspect]
     Route: 042
     Dates: start: 20120117
  4. OMEPRAZOLE [Concomitant]
     Route: 065
  5. AMLODIPINE [Concomitant]
     Route: 065

REACTIONS (3)
  - RENAL FAILURE [None]
  - GASTRITIS [None]
  - DEHYDRATION [None]
